FAERS Safety Report 22325306 (Version 1)
Quarter: 2023Q2

REPORT INFORMATION
  Report Type: Spontaneous
  Country: US (occurrence: US)
  Receive Date: 20230516
  Receipt Date: 20230516
  Transmission Date: 20230722
  Serious: Yes (Other)
  Sender: FDA-Public Use
  Company Number: US-ABBVIE-4768229

PATIENT
  Sex: Female

DRUGS (1)
  1. LUPRON DEPOT [Suspect]
     Active Substance: LEUPROLIDE ACETATE
     Indication: Uterine leiomyoma
     Route: 065
     Dates: start: 200301, end: 200306

REACTIONS (34)
  - Eye disorder [Unknown]
  - Joint injury [Unknown]
  - Off label use [Not Recovered/Not Resolved]
  - Female reproductive tract disorder [Unknown]
  - Arthropathy [Unknown]
  - Infection [Unknown]
  - Deafness [Unknown]
  - Neuropathy peripheral [Unknown]
  - Blindness [Unknown]
  - Hepatic haemorrhage [Unknown]
  - Liver injury [Unknown]
  - Diabetes mellitus [Unknown]
  - Hypertonic bladder [Unknown]
  - Dysstasia [Unknown]
  - White blood cell count decreased [Unknown]
  - Vasculitis [Unknown]
  - Renal injury [Unknown]
  - Disability [Unknown]
  - Pelvic floor dysfunction [Unknown]
  - Ligament injury [Unknown]
  - Hypertension [Unknown]
  - Sexual abstinence [Unknown]
  - Splenic injury [Unknown]
  - Cataract [Unknown]
  - Autoimmune disorder [Unknown]
  - Gastrointestinal disorder [Unknown]
  - Alopecia [Unknown]
  - Pancreatic injury [Unknown]
  - Personality disorder [Unknown]
  - Tooth loss [Unknown]
  - Hair disorder [Unknown]
  - Nervous system disorder [Unknown]
  - Tooth injury [Unknown]
  - Metabolic disorder [Unknown]
